FAERS Safety Report 7120543-X (Version None)
Quarter: 2010Q4

REPORT INFORMATION
  Report Type: 
  Country: None (occurrence: None)
  Receive Date: 20101124
  Receipt Date: 20101112
  Transmission Date: 20110411
  Serious: Yes (Other)
  Sender: FDA-Public Use
  Company Number: BR-PFIZER INC-2010113174

PATIENT
  Age: 52 Year
  Sex: Female
  Weight: 58 kg

DRUGS (8)
  1. CHAMPIX [Suspect]
     Indication: SMOKING CESSATION THERAPY
     Dosage: UNK
     Route: 048
     Dates: start: 20100810
  2. CHAMPIX [Suspect]
     Dosage: 1 MG, EVERY 12 HOURS
     Route: 048
     Dates: start: 20100801
  3. PANTOPRAZOLE [Suspect]
     Dosage: 10 MG, 2X/DAY
  4. ENALAPRIL [Concomitant]
     Indication: HYPERTENSION
     Dosage: 20 MG, 2X/DAY
  5. AMLODIPINE [Concomitant]
     Indication: HYPERTENSION
     Dosage: UNK
  6. CHLORTALIDONE [Concomitant]
     Indication: HYPERTENSION
     Dosage: 10 MG, 2X/DAY
  7. ALPRAZOLAM [Concomitant]
     Indication: INSOMNIA
     Dosage: 1 MG, 1X/DAY
     Dates: start: 20030101
  8. CALCIUM [Concomitant]
     Indication: OSTEOPOROSIS
     Dosage: UNK

REACTIONS (8)
  - ANGINA PECTORIS [None]
  - GASTRITIS BACTERIAL [None]
  - HEADACHE [None]
  - ILL-DEFINED DISORDER [None]
  - IRRITABILITY [None]
  - NAUSEA [None]
  - NERVOUSNESS [None]
  - WEIGHT INCREASED [None]
